FAERS Safety Report 21111259 (Version 1)
Quarter: 2022Q3

REPORT INFORMATION
  Report Type: Spontaneous
  Country: US (occurrence: US)
  Receive Date: 20220721
  Receipt Date: 20220721
  Transmission Date: 20221027
  Serious: Yes (Other)
  Sender: FDA-Public Use
  Company Number: US-Blueprint Medicines Corporation-268

PATIENT
  Sex: Female

DRUGS (1)
  1. AYVAKIT [Suspect]
     Active Substance: AVAPRITINIB
     Indication: Systemic mastocytosis
     Route: 048
     Dates: start: 20210902

REACTIONS (5)
  - Haemoglobin decreased [Unknown]
  - Lacrimation increased [Unknown]
  - Abdominal pain upper [Unknown]
  - Vomiting [Unknown]
  - Eructation [Unknown]
